FAERS Safety Report 5424087-2 (Version None)
Quarter: 2007Q3

REPORT INFORMATION
  Report Type: 
  Country: None (occurrence: None)
  Receive Date: 20070727
  Receipt Date: 20061012
  Transmission Date: 20080115
  Serious: Yes (Hospitalization)
  Sender: FDA-Public Use
  Company Number: THYM-10736

PATIENT
  Age: 58 Year
  Sex: Female
  Weight: 60 kg

DRUGS (7)
  1. THYMOGLOBULIN [Suspect]
     Indication: RENAL TRANSPLANT
     Dosage: 2.5 MG/KG QD IV
     Route: 042
     Dates: start: 20050421, end: 20050421
  2. THYMOGLOBULIN [Suspect]
     Indication: RENAL TRANSPLANT
     Dosage: 1.5 MG/KG QD IV
     Route: 042
     Dates: start: 20050422, end: 20050424
  3. CYCLOSPORINE [Suspect]
     Dosage: 300 MG QD
     Dates: start: 20050421
  4. POLARAMINE [Concomitant]
  5. METHYLPREDNISOLONE 16MG TAB [Concomitant]
  6. PREDNISONE [Concomitant]
  7. CELLCEPT [Concomitant]

REACTIONS (1)
  - RENAL IMPAIRMENT [None]
